FAERS Safety Report 10350665 (Version 1)
Quarter: 2014Q3

REPORT INFORMATION
  Report Type: Spontaneous
  Country: US (occurrence: None)
  Receive Date: 20140728
  Receipt Date: 20140728
  Transmission Date: 20150326
  Serious: Yes (Other)
  Sender: FDA-Public Use
  Company Number: None

PATIENT
  Age: 52 Year
  Sex: Female
  Weight: 61.69 kg

DRUGS (2)
  1. DULOXETINE [Suspect]
     Active Substance: DULOXETINE
     Indication: DEPRESSION
     Dosage: 1 CAPSULE ONCE DAILY TAKEN BY MOUTH
     Route: 048
     Dates: start: 20140724, end: 20140727
  2. DULOXETINE [Suspect]
     Active Substance: DULOXETINE
     Indication: FIBROMYALGIA
     Dosage: 1 CAPSULE ONCE DAILY TAKEN BY MOUTH
     Route: 048
     Dates: start: 20140724, end: 20140727

REACTIONS (7)
  - Dry mouth [None]
  - Pollakiuria [None]
  - Muscle spasms [None]
  - Thoracic outlet syndrome [None]
  - Sleep disorder [None]
  - Paraesthesia [None]
  - Middle insomnia [None]

NARRATIVE: CASE EVENT DATE: 20140727
